FAERS Safety Report 7914217 (Version 2)
Quarter: 2013Q4

REPORT INFORMATION
  Report Type: Spontaneous
  Country: DK (occurrence: DK)
  Receive Date: 20110426
  Receipt Date: 20131024
  Transmission Date: 20140711
  Serious: No
  Sender: FDA-Public Use
  Company Number: DK-RANBAXY-2011US-43719

PATIENT
  Age: 27 Year
  Sex: Female

DRUGS (1)
  1. OXCARBAZEPINE [Suspect]
     Indication: EPILEPSY
     Dosage: 525 MG, BID
     Route: 065

REACTIONS (1)
  - No adverse event [Unknown]
